FAERS Safety Report 8792337 (Version 2)
Quarter: 2015Q3

REPORT INFORMATION
  Report Type: Report from Study
  Country: US (occurrence: US)
  Receive Date: 20120918
  Receipt Date: 20150727
  Transmission Date: 20151125
  Serious: Yes (Death)
  Sender: FDA-Public Use
  Company Number: US-ROCHE-CID000000002109202

PATIENT
  Sex: Female

DRUGS (22)
  1. ALOXI [Concomitant]
     Active Substance: PALONOSETRON HYDROCHLORIDE
     Route: 065
  2. GLIPIZIDE. [Concomitant]
     Active Substance: GLIPIZIDE
     Dosage: TWO TABLETS IN MORNING AND 1.5 IN EVENING.
     Route: 065
  3. AVASTIN [Suspect]
     Active Substance: BEVACIZUMAB
     Indication: COLON CANCER
     Route: 065
     Dates: start: 20070823
  4. ERBITUX [Concomitant]
     Active Substance: CETUXIMAB
  5. TYLENOL [Concomitant]
     Active Substance: ACETAMINOPHEN
  6. COLAZAL [Concomitant]
     Active Substance: BALSALAZIDE DISODIUM
     Route: 065
  7. CANASA [Concomitant]
     Active Substance: MESALAMINE
     Dosage: AS REQUIRED
     Route: 065
  8. AVASTIN [Suspect]
     Active Substance: BEVACIZUMAB
     Route: 065
  9. PROTONIX (UNITED STATES) [Concomitant]
     Route: 065
  10. OXALIPLATIN. [Concomitant]
     Active Substance: OXALIPLATIN
  11. AVASTIN [Suspect]
     Active Substance: BEVACIZUMAB
     Route: 065
  12. CAMPTOSAR [Concomitant]
     Active Substance: IRINOTECAN HYDROCHLORIDE
     Route: 065
  13. FOSAMAX [Concomitant]
     Active Substance: ALENDRONATE SODIUM
     Route: 065
  14. XELODA [Suspect]
     Active Substance: CAPECITABINE
     Indication: PRODUCT USED FOR UNKNOWN INDICATION
     Route: 065
  15. SANDOSTATIN [Concomitant]
     Active Substance: OCTREOTIDE ACETATE
     Route: 065
  16. DIETHYLCARBAMAZINE [Concomitant]
     Active Substance: DIETHYLCARBAMAZINE
     Route: 065
  17. METFORMIN [Concomitant]
     Active Substance: METFORMIN HYDROCHLORIDE
     Route: 065
  18. VYTORIN [Concomitant]
     Active Substance: EZETIMIBE\SIMVASTATIN
     Route: 065
  19. TOPROL XL [Concomitant]
     Active Substance: METOPROLOL SUCCINATE
     Route: 065
  20. STARLIX [Concomitant]
     Active Substance: NATEGLINIDE
     Route: 065
  21. BENADRYL [Concomitant]
     Active Substance: DIPHENHYDRAMINE HYDROCHLORIDE
     Route: 065
  22. ATROPINE. [Concomitant]
     Active Substance: ATROPINE
     Route: 065

REACTIONS (4)
  - Death [Fatal]
  - Neuropathy peripheral [Unknown]
  - Diarrhoea [Unknown]
  - Colorectal cancer metastatic [Unknown]
